FAERS Safety Report 7764879-8 (Version None)
Quarter: 2011Q3

REPORT INFORMATION
  Report Type: 
  Country: None (occurrence: None)
  Receive Date: 20110921
  Receipt Date: 20110914
  Transmission Date: 20111222
  Serious: Yes (Other)
  Sender: FDA-Public Use
  Company Number: US-AMGEN-USASP2011047411

PATIENT
  Age: 55 Year
  Sex: Female

DRUGS (1)
  1. ENBREL [Suspect]
     Indication: RHEUMATOID ARTHRITIS
     Dosage: 25 MG, 2 TIMES/WK
     Dates: start: 20020101

REACTIONS (6)
  - KNEE ARTHROPLASTY [None]
  - RENAL FAILURE [None]
  - OEDEMA PERIPHERAL [None]
  - EYE INFECTION [None]
  - FEELING ABNORMAL [None]
  - FATIGUE [None]
